FAERS Safety Report 6434144-X (Version None)
Quarter: 2009Q4

REPORT INFORMATION
  Report Type: 
  Country: None (occurrence: None)
  Receive Date: 20091110
  Receipt Date: 20090605
  Transmission Date: 20100525
  Serious: No
  Sender: FDA-Public Use
  Company Number: US-ASTRAZENECA-2009UW16247

PATIENT
  Age: 54 Year
  Sex: Female

DRUGS (3)
  1. PRILOSEC OTC [Suspect]
     Indication: ARTHRALGIA
     Dosage: 1 TABLET, 1 /DAY FOR 730 DAYS
     Route: 048
     Dates: start: 20061106, end: 20081105
  2. METFORMIN HCL [Concomitant]
  3. INSULIN [Concomitant]

REACTIONS (2)
  - DIABETES MELLITUS [None]
  - DYSPHAGIA [None]
